FAERS Safety Report 16634900 (Version 1)
Quarter: 2019Q3

REPORT INFORMATION
  Report Type: Other
  Country: DE (occurrence: DE)
  Receive Date: 20190726
  Receipt Date: 20190726
  Transmission Date: 20191004
  Serious: No
  Sender: FDA-Public Use
  Company Number: DE-LUPIN PHARMACEUTICALS INC.-2018-07623

PATIENT
  Age: 58 Year
  Sex: Female
  Weight: 75 kg

DRUGS (1)
  1. LAMOTRIGINE. [Suspect]
     Active Substance: LAMOTRIGINE
     Indication: DEPRESSION
     Dosage: 100 MG, UNK
     Route: 048
     Dates: start: 20171015

REACTIONS (5)
  - Skin odour abnormal [Unknown]
  - Urinary hesitation [Unknown]
  - Hyperhidrosis [Unknown]
  - Genital odour [Unknown]
  - Tooth discolouration [Unknown]

NARRATIVE: CASE EVENT DATE: 20171201
